FAERS Safety Report 9486451 (Version 1)
Quarter: 2013Q3

REPORT INFORMATION
  Report Type: Report from Study
  Country: US (occurrence: US)
  Receive Date: 20130829
  Receipt Date: 20130829
  Transmission Date: 20140515
  Serious: Yes (Other)
  Sender: FDA-Public Use
  Company Number: US-ROCHE-1266322

PATIENT
  Sex: Male

DRUGS (3)
  1. HERCEPTIN [Suspect]
     Indication: HER-2 POSITIVE BREAST CANCER
     Route: 065
     Dates: start: 201012
  2. TAXOL [Concomitant]
  3. TAXOTERE [Concomitant]

REACTIONS (3)
  - Salivary gland cancer [Unknown]
  - Metastases to liver [Unknown]
  - Metastases to lymph nodes [Unknown]
